FAERS Safety Report 8292743 (Version 33)
Quarter: 2021Q4

REPORT INFORMATION
  Report Type: Other
  Country: CA (occurrence: None)
  Receive Date: 20111215
  Receipt Date: 20211110
  Transmission Date: 20220303
  Serious: Yes (Hospitalization, Other)
  Sender: FDA-Public Use
  Company Number: CA-ROCHE-1019887

PATIENT
  Age: 56 Year
  Sex: Female
  Weight: 81.6 kg

DRUGS (22)
  1. RITUXAN [Suspect]
     Active Substance: RITUXIMAB
     Indication: Rheumatoid arthritis
     Dosage: LAST DOSE :20/JAN/2016 AND 16/MAY/2016
     Route: 042
     Dates: start: 20090209
  2. RITUXAN [Suspect]
     Active Substance: RITUXIMAB
     Route: 042
     Dates: start: 20130530
  3. PREDNISONE [Suspect]
     Active Substance: PREDNISONE
     Indication: Product used for unknown indication
     Route: 065
  4. SOTALOL [Suspect]
     Active Substance: SOTALOL
     Indication: Hypertension
     Route: 065
  5. VITAMIN B12 [Suspect]
     Active Substance: CYANOCOBALAMIN
     Indication: Product used for unknown indication
     Route: 065
  6. GLICLAZIDE [Suspect]
     Active Substance: GLICLAZIDE
     Indication: Product used for unknown indication
     Route: 065
  7. DEPO-MEDROL [Suspect]
     Active Substance: METHYLPREDNISOLONE ACETATE
     Indication: Product used for unknown indication
     Route: 065
  8. ZOPICLONE [Concomitant]
     Active Substance: ZOPICLONE
  9. METHYLPREDNISOLONE ACETATE [Concomitant]
     Active Substance: METHYLPREDNISOLONE ACETATE
  10. LORAZEPAM [Concomitant]
     Active Substance: LORAZEPAM
  11. METFORMIN [Concomitant]
     Active Substance: METFORMIN HYDROCHLORIDE
  12. DIPHENHYDRAMINE HYDROCHLORIDE [Concomitant]
     Active Substance: DIPHENHYDRAMINE HYDROCHLORIDE
     Indication: Premedication
     Route: 048
     Dates: start: 20100301
  13. ACETAMINOPHEN [Concomitant]
     Active Substance: ACETAMINOPHEN
     Indication: Premedication
     Route: 048
     Dates: start: 20100301
  14. METHYLPREDNISOLONE [Concomitant]
     Active Substance: METHYLPREDNISOLONE
     Indication: Premedication
     Route: 042
     Dates: start: 20100301
  15. ASPIRIN [Concomitant]
     Active Substance: ASPIRIN
  16. RABEPRAZOLE [Concomitant]
     Active Substance: RABEPRAZOLE
  17. ATORVASTATIN [Concomitant]
     Active Substance: ATORVASTATIN
  18. RABEPRAZOLE SODIUM [Concomitant]
     Active Substance: RABEPRAZOLE SODIUM
  19. ELIQUIS [Concomitant]
     Active Substance: APIXABAN
  20. AMLODIPINE [Concomitant]
     Active Substance: AMLODIPINE BESYLATE
  21. IRBESARTAN [Concomitant]
     Active Substance: IRBESARTAN
  22. METHOTREXATE [Concomitant]
     Active Substance: METHOTREXATE

REACTIONS (45)
  - Lower respiratory tract infection [Unknown]
  - Trismus [Unknown]
  - Herpes zoster [Unknown]
  - Cough [Not Recovered/Not Resolved]
  - Lower respiratory tract congestion [Not Recovered/Not Resolved]
  - Arrhythmia [Unknown]
  - Weight increased [Recovered/Resolved]
  - Vascular rupture [Unknown]
  - Drug ineffective [Unknown]
  - Diabetic complication [Unknown]
  - Lower respiratory tract infection [Not Recovered/Not Resolved]
  - Pain [Not Recovered/Not Resolved]
  - Vulvovaginal pruritus [Not Recovered/Not Resolved]
  - Fatigue [Not Recovered/Not Resolved]
  - Vulvovaginal dryness [Not Recovered/Not Resolved]
  - Peripheral swelling [Recovered/Resolved]
  - Malaise [Not Recovered/Not Resolved]
  - Dry mouth [Recovered/Resolved]
  - Dry throat [Recovered/Resolved]
  - Periorbital swelling [Recovered/Resolved]
  - Nausea [Recovering/Resolving]
  - Hypoaesthesia [Recovering/Resolving]
  - Heart rate decreased [Unknown]
  - Arthralgia [Not Recovered/Not Resolved]
  - Therapeutic response shortened [Unknown]
  - Weight decreased [Unknown]
  - Malaise [Unknown]
  - Pain [Unknown]
  - Bone disorder [Unknown]
  - Immunosuppression [Not Recovered/Not Resolved]
  - Arthropathy [Unknown]
  - Blood pressure increased [Unknown]
  - Fatigue [Unknown]
  - Asthenia [Unknown]
  - Nausea [Not Recovered/Not Resolved]
  - Rheumatoid arthritis [Not Recovered/Not Resolved]
  - Asthenia [Unknown]
  - Fatigue [Not Recovered/Not Resolved]
  - Urinary tract infection [Unknown]
  - Off label use [Unknown]
  - Movement disorder [Unknown]
  - Bedridden [Unknown]
  - Cortisol decreased [Unknown]
  - Adrenal insufficiency [Unknown]
  - Blood glucose decreased [Unknown]

NARRATIVE: CASE EVENT DATE: 20101201
